FAERS Safety Report 4378603-2 (Version None)
Quarter: 2004Q2

REPORT INFORMATION
  Report Type: 
  Country: None (occurrence: None)
  Receive Date: 20040610
  Receipt Date: 20040531
  Transmission Date: 20050107
  Serious: Yes (Hospitalization)
  Sender: FDA-Public Use
  Company Number: JP-JNJFOC-20040601284

PATIENT
  Age: 32 Year
  Sex: Male
  Weight: 90.3 kg

DRUGS (4)
  1. LEVOFLOXACIN [Suspect]
     Indication: UPPER RESPIRATORY TRACT INFLAMMATION
     Dosage: 200 MG, 2 IN 1 DAY, ORAL
     Route: 048
     Dates: start: 20040516, end: 20040519
  2. MARZULENE S (MARZULENE S) [Concomitant]
  3. CALONAL (PARACETAMOL) [Concomitant]
  4. DASEN (SERRAPEPTASE) [Concomitant]

REACTIONS (1)
  - BLOOD CREATINE PHOSPHOKINASE INCREASED [None]
